FAERS Safety Report 18535223 (Version 1)
Quarter: 2020Q4

REPORT INFORMATION
  Report Type: Spontaneous
  Country: BR (occurrence: BR)
  Receive Date: 20201123
  Receipt Date: 20201123
  Transmission Date: 20210114
  Serious: Yes (Other)
  Sender: FDA-Public Use
  Company Number: BR-BAYER-2020-250862

PATIENT

DRUGS (1)
  1. VITRAKVI [Suspect]
     Active Substance: LAROTRECTINIB
     Indication: GLIOBLASTOMA MULTIFORME
     Dosage: UNK
     Dates: start: 202008

REACTIONS (4)
  - Respiratory failure [None]
  - Pleural effusion [None]
  - Embolism [None]
  - Hypoxia [None]
